FAERS Safety Report 8529775-7 (Version None)
Quarter: 2012Q3

REPORT INFORMATION
  Report Type: 
  Country: None (occurrence: None)
  Receive Date: 20120723
  Receipt Date: 20120717
  Transmission Date: 20120928
  Serious: Yes (Hospitalization, Other)
  Sender: FDA-Public Use
  Company Number: US-009507513-1204USA01368

PATIENT

DRUGS (4)
  1. FOSAMAX [Suspect]
     Dosage: 70 MG, UNK
     Dates: start: 20110728
  2. FOSAMAX [Suspect]
     Indication: OSTEOPOROSIS
     Dosage: 70 MG, QW
     Route: 048
     Dates: start: 19960301, end: 20080301
  3. FOSAMAX [Suspect]
     Dosage: 10 MG, UNK
     Route: 048
     Dates: start: 19970913
  4. FOSAMAX [Suspect]
     Dosage: 70 MG, QW
     Route: 048
     Dates: start: 20080303, end: 20120601

REACTIONS (29)
  - LIMB INJURY [None]
  - ARTHRITIS [None]
  - BACK PAIN [None]
  - RECTAL HAEMORRHAGE [None]
  - NEPHROLITHIASIS [None]
  - CALCIUM DEFICIENCY [None]
  - VENOUS INSUFFICIENCY [None]
  - NAUSEA [None]
  - DYSPEPSIA [None]
  - HYPERTENSION [None]
  - WOUND INFECTION [None]
  - GAIT DISTURBANCE [None]
  - BLOOD CHOLESTEROL INCREASED [None]
  - HYPERLIPIDAEMIA [None]
  - POLYP [None]
  - FALL [None]
  - ARTHRALGIA [None]
  - ASTHMA [None]
  - FEMUR FRACTURE [None]
  - VITAMIN D DEFICIENCY [None]
  - ANXIETY [None]
  - CHRONIC OBSTRUCTIVE PULMONARY DISEASE [None]
  - SLEEP APNOEA SYNDROME [None]
  - GASTROOESOPHAGEAL REFLUX DISEASE [None]
  - DIABETES MELLITUS [None]
  - VOMITING [None]
  - BLOOD CALCIUM DECREASED [None]
  - ADVERSE EVENT [None]
  - CATARACT [None]
